FAERS Safety Report 9287486 (Version 1)
Quarter: 2013Q2

REPORT INFORMATION
  Report Type: Spontaneous
  Country: US (occurrence: US)
  Receive Date: 20130514
  Receipt Date: 20130514
  Transmission Date: 20140414
  Serious: No
  Sender: FDA-Public Use
  Company Number: US-BIOGENIDEC-2013BI041569

PATIENT
  Age: 45 Year
  Sex: Female

DRUGS (1)
  1. TYSABRI [Suspect]
     Indication: MULTIPLE SCLEROSIS
     Route: 042
     Dates: start: 20091028

REACTIONS (9)
  - Depressed mood [Unknown]
  - Musculoskeletal disorder [Unknown]
  - Fall [Recovered/Resolved]
  - Emotional distress [Unknown]
  - Local swelling [Unknown]
  - Atrophy [Unknown]
  - Spinal pain [Unknown]
  - Weight fluctuation [Not Recovered/Not Resolved]
  - Joint swelling [Unknown]
